FAERS Safety Report 14603397 (Version 1)
Quarter: 2018Q1

REPORT INFORMATION
  Report Type: Spontaneous
  Country: CN (occurrence: CN)
  Receive Date: 20180306
  Receipt Date: 20180306
  Transmission Date: 20180509
  Serious: Yes (Hospitalization)
  Sender: FDA-Public Use
  Company Number: CN-MYLANLABS-2018M1014049

PATIENT
  Age: 53 Year
  Sex: Male

DRUGS (2)
  1. HEPARIN [Suspect]
     Active Substance: HEPARIN SODIUM
     Indication: PULMONARY EMBOLISM
     Dosage: UNK
     Route: 065
  2. UROKINASE [Suspect]
     Active Substance: UROKINASE
     Indication: PULMONARY EMBOLISM
     Dosage: INFUSION, 20,000 IU/KG OVER 2 HOUR
     Route: 050

REACTIONS (1)
  - Drug ineffective [Unknown]
